FAERS Safety Report 10413410 (Version 1)
Quarter: 2014Q3

REPORT INFORMATION
  Report Type: Spontaneous
  Country: US (occurrence: US)
  Receive Date: 20140827
  Receipt Date: 20140827
  Transmission Date: 20150326
  Serious: Yes (Other)
  Sender: FDA-Public Use
  Company Number: CHPA2014US011153

PATIENT
  Sex: Female

DRUGS (1)
  1. VOLTAREN [Suspect]
     Active Substance: DICLOFENAC SODIUM

REACTIONS (3)
  - Concomitant disease aggravated [Unknown]
  - Burning sensation [Unknown]
  - Neuropathy peripheral [Unknown]
